FAERS Safety Report 8710799 (Version 2)
Quarter: 2012Q4

REPORT INFORMATION
  Report Type: 
  Country: CA (occurrence: CA)
  Receive Date: 20120807
  Receipt Date: 20120926
  Transmission Date: 20130627
  Serious: Yes (Death, Other)
  Sender: FDA-Public Use
  Company Number: PHHY2012CA067059

PATIENT
  Sex: Female

DRUGS (2)
  1. SANDOSTATIN LAR [Suspect]
     Indication: ENDOCRINE NEOPLASM MALIGNANT
     Dosage: 20 mg once a month
     Route: 030
     Dates: start: 20120330
  2. SANDOSTATIN LAR [Suspect]
     Dosage: 30 mg once a month
     Route: 030
     Dates: end: 20120830

REACTIONS (2)
  - Death [Fatal]
  - Blood pressure decreased [Unknown]
